FAERS Safety Report 16423682 (Version 2)
Quarter: 2019Q4

REPORT INFORMATION
  Report Type: Spontaneous
  Country: GB (occurrence: GB)
  Receive Date: 20190613
  Receipt Date: 20191217
  Transmission Date: 20200122
  Serious: Yes (Death)
  Sender: FDA-Public Use
  Company Number: GB-TEVA-2019-GB-1061658

PATIENT
  Sex: Male
  Weight: 52 kg

DRUGS (10)
  1. VINBLASTINE [Suspect]
     Active Substance: VINBLASTINE
     Dosage: 9 MG
     Route: 065
     Dates: start: 20181108, end: 20181108
  2. GAVISCON [Concomitant]
     Active Substance: ALUMINUM HYDROXIDE\MAGNESIUM CARBONATE
  3. ISOSORBIDE MONONITRATE. [Concomitant]
     Active Substance: ISOSORBIDE MONONITRATE
     Dosage: 40 MG PER DAY
  4. DOXORUBICIN [Suspect]
     Active Substance: DOXORUBICIN
     Dosage: 40 MG
     Route: 065
     Dates: start: 20181108, end: 20181108
  5. ATORVASTATIN [Concomitant]
     Active Substance: ATORVASTATIN
     Dosage: 40 MG PER DAY
  6. LEVOTHYROXINE. [Concomitant]
     Active Substance: LEVOTHYROXINE
     Dosage: 100 MG PER DAY
  7. LANSOPRAZOLE. [Concomitant]
     Active Substance: LANSOPRAZOLE
     Dosage: 30 MG PER DAY
  8. DACARBAZINE. [Suspect]
     Active Substance: DACARBAZINE
     Dosage: 560MG
     Route: 065
     Dates: start: 20181108, end: 20181108
  9. CLOPIDOGREL [Concomitant]
     Active Substance: CLOPIDOGREL BISULFATE
     Dosage: 75 MG PER DAY
  10. RAMIPRIL. [Concomitant]
     Active Substance: RAMIPRIL
     Dosage: 10 MG PER DAY

REACTIONS (3)
  - Anaphylactic reaction [Fatal]
  - Pulseless electrical activity [Fatal]
  - Tachycardia [Fatal]

NARRATIVE: CASE EVENT DATE: 201811
